FAERS Safety Report 8267776-7 (Version None)
Quarter: 2012Q2

REPORT INFORMATION
  Report Type: 
  Country: None (occurrence: None)
  Receive Date: 20120404
  Receipt Date: 20120319
  Transmission Date: 20120825
  Serious: Yes (Hospitalization, Other)
  Sender: FDA-Public Use
  Company Number: 1232019

PATIENT
  Age: 62 Year
  Sex: Male

DRUGS (13)
  1. CALCIUM GLUCONATE [Suspect]
     Indication: PRODUCT USED FOR UNKNOWN INDICATION
     Dosage: 5.0 GRAM, ONCE, UNKNOWN, INTRAVENOUS
     Route: 042
  2. FENTANYL [Concomitant]
  3. OLANZAPINE [Concomitant]
  4. THIAMINE HCL [Concomitant]
  5. HUMULIN R [Concomitant]
  6. POTASSIUM CHLORIDE [Concomitant]
  7. HEPARIN SODIUM [Concomitant]
  8. MAXERAN [Concomitant]
  9. PROPOFOL [Concomitant]
  10. CEFTRIAXONE SODIUM [Suspect]
     Indication: PRODUCT USED FOR UNKNOWN INDICATION
     Dosage: 1.0 GRAM, 1 EVERY 24 HOURS, UNKNOWN
  11. PHENYTOIN [Concomitant]
  12. ZANTAC [Concomitant]
  13. MIDAZOLAM HYDROCHLORIDE [Concomitant]

REACTIONS (1)
  - RENAL FAILURE ACUTE [None]
